FAERS Safety Report 4368350-5 (Version None)
Quarter: 2004Q2

REPORT INFORMATION
  Report Type: 
  Country: None (occurrence: None)
  Receive Date: 20040525
  Receipt Date: 20040511
  Transmission Date: 20050107
  Serious: Yes (Hospitalization)
  Sender: FDA-Public Use
  Company Number: 2004-CN-00187CN

PATIENT
  Sex: Male

DRUGS (7)
  1. CATAPRES [Suspect]
     Dosage: 0.8 MG (0.2 MG, 4/DAY)
     Route: 048
  2. ALDACTONE [Concomitant]
  3. LOPRESSOR [Concomitant]
  4. PROCARDIA [Concomitant]
  5. IMDUR [Concomitant]
  6. PRENAVIL [Concomitant]
  7. K-DUR 10 [Concomitant]

REACTIONS (3)
  - BLOOD PRESSURE INADEQUATELY CONTROLLED [None]
  - BLOOD PRESSURE INCREASED [None]
  - HEART RATE IRREGULAR [None]
